FAERS Safety Report 7287745-3 (Version None)
Quarter: 2011Q1

REPORT INFORMATION
  Report Type: 
  Country: None (occurrence: None)
  Receive Date: 20110211
  Receipt Date: 20110202
  Transmission Date: 20110831
  Serious: Yes (Hospitalization)
  Sender: FDA-Public Use
  Company Number: NL-MPIJNJ-2011-00467

PATIENT

DRUGS (7)
  1. VELCADE [Suspect]
     Indication: MULTIPLE MYELOMA
     Dosage: UNK
     Route: 065
     Dates: start: 20090717, end: 20091009
  2. CYCLOPHOSPHAMIDE [Suspect]
     Indication: MULTIPLE MYELOMA
     Dosage: UNK
     Route: 065
     Dates: start: 20090717, end: 20091015
  3. HYDROCHLOROTHIAZDE TAB [Concomitant]
     Indication: HYPERTENSION
     Dosage: 12.5 MG, UNK
     Route: 048
     Dates: end: 20091112
  4. DEXAMETHASONE [Suspect]
     Indication: MULTIPLE MYELOMA
     Dosage: UNK
     Route: 065
     Dates: start: 20090717, end: 20091010
  5. ESOMEPRAZOL                        /01479302/ [Concomitant]
     Indication: HYPERTENSION
     Dosage: 20 MG, UNK
     Route: 048
     Dates: end: 20091112
  6. METOCLOPRAMIDE HCL [Concomitant]
     Dosage: 10 MG, UNK
     Route: 048
     Dates: end: 20091112
  7. FENTANYL [Concomitant]
     Indication: PAIN
     Dosage: UNK
     Route: 062
     Dates: end: 20091112

REACTIONS (3)
  - DIARRHOEA [None]
  - WEIGHT DECREASED [None]
  - VOMITING [None]
